FAERS Safety Report 5062701-4 (Version None)
Quarter: 2006Q3

REPORT INFORMATION
  Report Type: 
  Country: None (occurrence: None)
  Receive Date: 20060703
  Receipt Date: 20051004
  Transmission Date: 20061208
  Serious: No
  Sender: FDA-Public Use
  Company Number: 2005S1010546

PATIENT
  Age: 53 Year
  Sex: Female
  Weight: 59.8748 kg

DRUGS (15)
  1. CLOZAPINE [Suspect]
     Indication: SCHIZOPHRENIA
     Dosage: 200 MG; HS; ORAL
     Route: 048
     Dates: start: 20050902, end: 20050916
  2. ARIPIRAZOLE [Concomitant]
  3. DESMOPRESSIN [Concomitant]
  4. DOCUSATE SODIUM [Concomitant]
  5. LACTULOSE [Concomitant]
  6. ACETYLSALICYLIC ACID SRT [Concomitant]
  7. ALBUTEROL SPIROS [Concomitant]
  8. ENALAPRIL MALEATE [Concomitant]
  9. CALCIUM CARBONATE [Concomitant]
  10. DILTIAZEM HCL [Concomitant]
  11. SIMVASTATIN [Concomitant]
  12. FLUPHENAZINE [Concomitant]
  13. CARBIDOPA AND LEVODOPA [Concomitant]
  14. VALPROIC ACID [Concomitant]
  15. LORAZEPAM [Concomitant]

REACTIONS (1)
  - GRANULOCYTOPENIA [None]
